FAERS Safety Report 9208110 (Version 4)
Quarter: 2013Q2

REPORT INFORMATION
  Report Type: Spontaneous
  Country: US (occurrence: US)
  Receive Date: 20130403
  Receipt Date: 20130426
  Transmission Date: 20140414
  Serious: Yes (Hospitalization)
  Sender: FDA-Public Use
  Company Number: US-GILEAD-2013-0072330

PATIENT
  Age: 56 Year
  Sex: Female

DRUGS (1)
  1. LETAIRIS [Suspect]
     Indication: PORTOPULMONARY HYPERTENSION
     Dosage: 5 MG, UNK
     Dates: start: 20130311

REACTIONS (2)
  - Catheterisation cardiac [Unknown]
  - Ascites [Unknown]
